FAERS Safety Report 5394849-9 (Version None)
Quarter: 2007Q3

REPORT INFORMATION
  Report Type: 
  Country: None (occurrence: None)
  Receive Date: 20070723
  Receipt Date: 20070716
  Transmission Date: 20080115
  Serious: Yes (Other)
  Sender: FDA-Public Use
  Company Number: BR-ABBOTT-07P-020-0374717-00

PATIENT
  Sex: Female

DRUGS (2)
  1. KLARICID UD TABLETS [Suspect]
     Indication: NASOPHARYNGITIS
     Route: 048
  2. BETAMETHASONE + PROPIONATE (BETA 30) [Concomitant]
     Indication: NASOPHARYNGITIS
     Dates: start: 20070601, end: 20070601

REACTIONS (5)
  - ACHOLIA [None]
  - ASTHENIA [None]
  - CHOLURIA [None]
  - HEPATITIS [None]
  - JAUNDICE [None]
